APPROVED DRUG PRODUCT: GLYCOPYRROLATE
Active Ingredient: GLYCOPYRROLATE
Strength: 0.2MG/ML
Dosage Form/Route: INJECTABLE;INJECTION
Application: A212227 | Product #001
Applicant: XIROMED PHARMA ESPANA SL
Approved: Mar 4, 2021 | RLD: No | RS: No | Type: DISCN